FAERS Safety Report 21181276 (Version 1)
Quarter: 2022Q3

REPORT INFORMATION
  Report Type: Spontaneous
  Country: US (occurrence: US)
  Receive Date: 20220806
  Receipt Date: 20220806
  Transmission Date: 20221026
  Serious: No
  Sender: FDA-Public Use
  Company Number: US-SA-SAC20220731000297

PATIENT
  Sex: Female

DRUGS (1)
  1. DUPIXENT [Suspect]
     Active Substance: DUPILUMAB
     Indication: Asthma
     Dosage: DOSE- 600 MG /2ML FREQUENCY: EVERY 14 DAYS
     Route: 058
     Dates: start: 20220628

REACTIONS (2)
  - Injection site bruising [Unknown]
  - Product use issue [Unknown]
